FAERS Safety Report 11942485 (Version 2)
Quarter: 2019Q3

REPORT INFORMATION
  Report Type: Report from Study
  Country: NL (occurrence: NL)
  Receive Date: 20160125
  Receipt Date: 20190819
  Transmission Date: 20191004
  Serious: Yes (Congenital Anomaly, Other)
  Sender: FDA-Public Use
  Company Number: NL-UCBSA-2016001951

PATIENT

DRUGS (1)
  1. LEVETIRACETAM. [Suspect]
     Active Substance: LEVETIRACETAM
     Indication: EPILEPSY
     Dosage: 1000 MG, DAILY
     Route: 064
     Dates: end: 2014

REACTIONS (2)
  - Developmental hip dysplasia [Unknown]
  - Maternal exposure during pregnancy [Unknown]
